FAERS Safety Report 4750750-2 (Version None)
Quarter: 2005Q3

REPORT INFORMATION
  Report Type: 
  Country: None (occurrence: None)
  Receive Date: 20050822
  Receipt Date: 20050808
  Transmission Date: 20060218
  Serious: Yes (Death, Hospitalization)
  Sender: FDA-Public Use
  Company Number: 195617

PATIENT
  Age: 57 Year
  Sex: Female
  Weight: 99.7913 kg

DRUGS (2)
  1. AVONEX [Suspect]
     Indication: MULTIPLE SCLEROSIS
     Dosage: 30 G;QW;IM
     Route: 030
     Dates: start: 19990101, end: 20020801
  2. PILLS [Concomitant]

REACTIONS (5)
  - HYSTERECTOMY [None]
  - IATROGENIC INJURY [None]
  - LUNG CANCER METASTATIC [None]
  - PERITONEAL CARCINOMA [None]
  - PROCEDURAL COMPLICATION [None]
